FAERS Safety Report 15793477 (Version 8)
Quarter: 2020Q3

REPORT INFORMATION
  Report Type: Spontaneous
  Country: US (occurrence: US)
  Receive Date: 20190107
  Receipt Date: 20200824
  Transmission Date: 20201102
  Serious: Yes (Hospitalization, Other)
  Sender: FDA-Public Use
  Company Number: US-PFIZER INC-2018323636

PATIENT
  Age: 95 Year
  Sex: Female

DRUGS (1)
  1. LYRICA [Suspect]
     Active Substance: PREGABALIN
     Indication: FIBROMYALGIA
     Dosage: 50 MG, 3X/DAY, (TAKE 1 CAPSULES 3 TIMES A DAY BY ORAL ROUTE)
     Route: 048

REACTIONS (3)
  - Hip fracture [Unknown]
  - Drug hypersensitivity [Unknown]
  - Fall [Unknown]
